FAERS Safety Report 10920136 (Version 1)
Quarter: 2015Q1

REPORT INFORMATION
  Report Type: Report from Study
  Country: US (occurrence: US)
  Receive Date: 20150317
  Receipt Date: 20150317
  Transmission Date: 20150721
  Serious: Yes (Death)
  Sender: FDA-Public Use
  Company Number: PHEH2015US004628

PATIENT
  Age: 18 Year
  Sex: Male

DRUGS (2)
  1. TOBI [Suspect]
     Active Substance: TOBRAMYCIN
     Indication: LUNG DISORDER
     Dosage: 300 MG, BID
     Route: 055
     Dates: start: 20140501, end: 20150113
  2. TOBI [Suspect]
     Active Substance: TOBRAMYCIN
     Indication: BRONCHITIS CHRONIC

REACTIONS (2)
  - Product use issue [Unknown]
  - Death [Fatal]

NARRATIVE: CASE EVENT DATE: 20140501
